FAERS Safety Report 8420427-0 (Version None)
Quarter: 2012Q2

REPORT INFORMATION
  Report Type: 
  Country: None (occurrence: None)
  Receive Date: 20120607
  Receipt Date: 20120530
  Transmission Date: 20120825
  Serious: Yes (Other)
  Sender: FDA-Public Use
  Company Number: US-RB-041025-12

PATIENT
  Sex: Male

DRUGS (2)
  1. SUBOXONE [Suspect]
     Dosage: 1-1/4 8 MG STRIPS DAILY
     Route: 065
     Dates: end: 20120501
  2. SUBOXONE [Suspect]
     Indication: DRUG DEPENDENCE
     Route: 065
     Dates: start: 20120428

REACTIONS (7)
  - OFF LABEL USE [None]
  - OEDEMA PERIPHERAL [None]
  - DRUG WITHDRAWAL SYNDROME [None]
  - PULMONARY OEDEMA [None]
  - THERAPEUTIC RESPONSE UNEXPECTED [None]
  - ABNORMAL WEIGHT GAIN [None]
  - PAIN IN EXTREMITY [None]
